FAERS Safety Report 8955325 (Version 1)
Quarter: 2012Q4

REPORT INFORMATION
  Report Type: Spontaneous
  Country: DK (occurrence: None)
  Receive Date: 20121130
  Receipt Date: 20121130
  Transmission Date: 20130627
  Serious: Yes (Other)
  Sender: FDA-Public Use
  Company Number: DSA_60978_2012

PATIENT
  Age: 65 Year
  Sex: Female

DRUGS (14)
  1. METRONIDAZOLE (METRONIDAZOLE) [Suspect]
     Indication: PRODUCT USED FOR UNKNOWN INDICATION
     Dosage: (DF)
  2. CEFUROXIME [Suspect]
     Indication: PNEUMONIA
     Dosage: (DF)
     Dates: start: 20090810
  3. B-COMBIN /00255501/ [Concomitant]
  4. POTASSIUM CHLORIDE [Concomitant]
  5. PLAVIX [Concomitant]
  6. ASPIRIN [Concomitant]
  7. CIPROFLOXACIN [Concomitant]
  8. PARACETAMOL [Concomitant]
  9. PHENOBARBITAL [Concomitant]
  10. PANTOPRAZOLE [Concomitant]
  11. FERROUS SULFATE [Concomitant]
  12. FURIX [Concomitant]
  13. RISPERDAL [Concomitant]
  14. THIAMINE [Concomitant]

REACTIONS (4)
  - Fungal infection [None]
  - Disbacteriosis [None]
  - Hallucination [None]
  - Delusion [None]
